FAERS Safety Report 9171453 (Version 2)
Quarter: 2013Q2

REPORT INFORMATION
  Report Type: Spontaneous
  Country: US (occurrence: US)
  Receive Date: 20130319
  Receipt Date: 20130418
  Transmission Date: 20140414
  Serious: Yes (Hospitalization, Other)
  Sender: FDA-Public Use
  Company Number: US-PFIZER INC-2013086258

PATIENT
  Sex: Male

DRUGS (1)
  1. VIAGRA [Suspect]
     Dosage: UNK

REACTIONS (5)
  - Pneumonia [Unknown]
  - Diabetes mellitus [Unknown]
  - Impaired work ability [Unknown]
  - Burning sensation [Unknown]
  - Drug ineffective [Unknown]
